FAERS Safety Report 9467868 (Version 2)
Quarter: 2013Q3

REPORT INFORMATION
  Report Type: Spontaneous
  Country: GB (occurrence: GB)
  Receive Date: 20130821
  Receipt Date: 20130823
  Transmission Date: 20140515
  Serious: Yes (Life-Threatening, Hospitalization, Disabling)
  Sender: FDA-Public Use
  Company Number: GB-SANOFI-AVENTIS-2013SA081909

PATIENT
  Age: 35 Year
  Sex: Male

DRUGS (3)
  1. TELFAST [Suspect]
     Indication: SEASONAL ALLERGY
     Route: 048
     Dates: start: 20130701, end: 20130801
  2. OMEPRAZOLE [Concomitant]
     Indication: GASTROOESOPHAGEAL REFLUX DISEASE
  3. SYMBICORT [Concomitant]
     Indication: ASTHMA
     Dosage: DOSE: 400 MCG 1 PUFF TWICE A DAY

REACTIONS (9)
  - Activities of daily living impaired [Recovering/Resolving]
  - Asthma [Recovering/Resolving]
  - Dyspnoea [Recovering/Resolving]
  - Chest discomfort [Recovering/Resolving]
  - Therapeutic response decreased [Unknown]
  - Appetite disorder [Recovering/Resolving]
  - Rash [Recovering/Resolving]
  - Pruritus [Recovering/Resolving]
  - Insomnia [Recovering/Resolving]
